FAERS Safety Report 24189544 (Version 1)
Quarter: 2024Q3

REPORT INFORMATION
  Report Type: Spontaneous
  Country: US (occurrence: None)
  Receive Date: 20240807
  Receipt Date: 20240807
  Transmission Date: 20241017
  Serious: Yes (Other)
  Sender: Public
  Company Number: None

PATIENT
  Age: 55 Year
  Sex: Male

DRUGS (4)
  1. ZEPOSIA [Suspect]
     Active Substance: OZANIMOD HYDROCHLORIDE
     Dosage: FREQUENCY : DAILY;?
     Route: 048
  2. testosterone IM injection [Concomitant]
  3. FLUTICASONE [Concomitant]
     Active Substance: FLUTICASONE
  4. VITAMINS [Concomitant]
     Active Substance: VITAMINS

REACTIONS (4)
  - Arthralgia [None]
  - Joint swelling [None]
  - Erythema [None]
  - Gait disturbance [None]

NARRATIVE: CASE EVENT DATE: 20240806
